FAERS Safety Report 6089434-X (Version None)
Quarter: 2009Q1

REPORT INFORMATION
  Report Type: 
  Country: None (occurrence: None)
  Receive Date: 20090224
  Receipt Date: 20090217
  Transmission Date: 20090719
  Serious: Yes (Other)
  Sender: FDA-Public Use
  Company Number: US-ELI_LILLY_AND_COMPANY-US200902004318

PATIENT
  Sex: Male

DRUGS (3)
  1. HUMULIN R [Suspect]
     Indication: TYPE 2 DIABETES MELLITUS
  2. HUMULIN N [Suspect]
     Indication: TYPE 2 DIABETES MELLITUS
  3. HUMALOG [Suspect]
     Indication: TYPE 2 DIABETES MELLITUS

REACTIONS (5)
  - BLINDNESS [None]
  - BLOOD GLUCOSE ABNORMAL [None]
  - DIABETIC RETINOPATHY [None]
  - DRUG INEFFECTIVE [None]
  - LEG AMPUTATION [None]
